FAERS Safety Report 7766251-3 (Version None)
Quarter: 2011Q3

REPORT INFORMATION
  Report Type: 
  Country: None (occurrence: None)
  Receive Date: 20110921
  Receipt Date: 20110913
  Transmission Date: 20111222
  Serious: Yes (Death, Hospitalization)
  Sender: FDA-Public Use
  Company Number: US-ELI_LILLY_AND_COMPANY-US201108003288

PATIENT
  Sex: Male

DRUGS (12)
  1. BUPROPION HCL [Concomitant]
     Dosage: UNK
     Dates: start: 20090101
  2. CISPLATIN [Suspect]
     Indication: NON-SMALL CELL LUNG CANCER
     Dosage: 80 MG/M2, UNK
     Route: 042
     Dates: start: 20110429
  3. NORMAX [Concomitant]
     Dosage: UNK
     Dates: start: 20070101
  4. VINORELBINE [Suspect]
     Indication: NON-SMALL CELL LUNG CANCER
     Dosage: 25 MG/M2, UNK
     Route: 042
     Dates: start: 20110429
  5. MEGACE [Concomitant]
  6. ZINC [Concomitant]
  7. OMEPRAZOLE [Concomitant]
     Dosage: UNK
     Dates: start: 20090101
  8. WELLBUTRIN [Concomitant]
  9. CETUXIMAB [Suspect]
     Indication: NON-SMALL CELL LUNG CANCER
     Dosage: 490 MG/M2, UNK
     Route: 042
     Dates: start: 20110429
  10. HYDROXYZINE HYDROCHLORIDE [Concomitant]
     Dosage: UNK
     Dates: start: 20090101
  11. SERTRALINE HYDROCHLORIDE [Concomitant]
     Dosage: UNK
     Dates: start: 20090101
  12. TRIFLUOPERAZINE HCL [Concomitant]
     Dosage: UNK
     Dates: start: 20090101

REACTIONS (8)
  - ELECTROLYTE DEPLETION [None]
  - RENAL FAILURE ACUTE [None]
  - DECREASED APPETITE [None]
  - HYPOMAGNESAEMIA [None]
  - NEOPLASM PROGRESSION [None]
  - DEHYDRATION [None]
  - HYPOTENSION [None]
  - DYSPNOEA [None]
